FAERS Safety Report 14855106 (Version 1)
Quarter: 2018Q2

REPORT INFORMATION
  Report Type: Spontaneous
  Country: US (occurrence: US)
  Receive Date: 20180507
  Receipt Date: 20180507
  Transmission Date: 20180711
  Serious: No
  Sender: FDA-Public Use
  Company Number: US-ROCHE-1939837

PATIENT
  Sex: Male

DRUGS (7)
  1. ESBRIET [Suspect]
     Active Substance: PIRFENIDONE
     Indication: IDIOPATHIC PULMONARY FIBROSIS
     Dosage: FOR INFORMATIONAL PURPOSES
     Route: 048
     Dates: start: 2016
  2. ESBRIET [Suspect]
     Active Substance: PIRFENIDONE
     Dosage: 3 CAPSULES BY MOUTH THREE TIMES A DAY WITH FOOD
     Route: 048
     Dates: start: 20170524
  3. ASPIRIN. [Concomitant]
     Active Substance: ASPIRIN
     Dosage: LOW DOSE
     Route: 065
  4. SIMVASTATIN. [Concomitant]
     Active Substance: SIMVASTATIN
  5. METOPROLOL SUCCINATE. [Concomitant]
     Active Substance: METOPROLOL SUCCINATE
  6. OMEPRAZOLE. [Concomitant]
     Active Substance: OMEPRAZOLE
  7. ESBRIET [Suspect]
     Active Substance: PIRFENIDONE
     Dosage: 3 CAPSULES BY MOUTH THRICE A DAY WITH FOOD
     Route: 048
     Dates: start: 20170601

REACTIONS (4)
  - Rhinorrhoea [Unknown]
  - Rhinorrhoea [Recovered/Resolved]
  - Upper-airway cough syndrome [Not Recovered/Not Resolved]
  - Upper-airway cough syndrome [Unknown]

NARRATIVE: CASE EVENT DATE: 2016
